FAERS Safety Report 6257231-8 (Version None)
Quarter: 2009Q3

REPORT INFORMATION
  Report Type: 
  Country: None (occurrence: None)
  Receive Date: 20090706
  Receipt Date: 20090624
  Transmission Date: 20100115
  Serious: Yes (Hospitalization)
  Sender: FDA-Public Use
  Company Number: FR-PFIZER INC-2009231131

PATIENT
  Age: 91 Year

DRUGS (12)
  1. ALDACTONE [Suspect]
     Indication: HYPERTENSION
     Dosage: 1 DF, 1X/DAY
     Route: 048
     Dates: end: 20090202
  2. COTAREG [Interacting]
     Indication: HYPERTENSION
     Dosage: 1 DF, 1X/DAY
     Route: 048
     Dates: end: 20090202
  3. LASIX [Interacting]
     Indication: HYPERTENSION
     Dosage: 20 MG, 1X/DAY
     Route: 048
     Dates: end: 20090202
  4. DISCOTRINE [Concomitant]
     Indication: PROPHYLAXIS
     Dosage: 5 MG, 1X/DAY
     Route: 062
     Dates: end: 20090202
  5. CORDARONE [Concomitant]
     Indication: ARRHYTHMIA
     Dosage: 1 DF, 1X/DAY
     Route: 048
     Dates: end: 20090202
  6. ADANCOR [Concomitant]
     Indication: PROPHYLAXIS
     Dosage: 10 MG, 1X/DAY
     Route: 048
     Dates: end: 20090202
  7. HEMIGOXINE NATIVELLE [Concomitant]
     Indication: VENTRICULAR ARRHYTHMIA
     Dosage: 1 DF, 1X/DAY
     Route: 048
     Dates: end: 20090202
  8. COUMADIN [Concomitant]
     Dosage: UNK
  9. MONTELUKAST SODIUM [Concomitant]
     Dosage: UNK
  10. NEXIUM [Concomitant]
     Dosage: UNK
  11. TEMESTA [Concomitant]
     Dosage: UNK
  12. SERETIDE [Concomitant]
     Dosage: UNK

REACTIONS (2)
  - DRUG INTERACTION [None]
  - RENAL FAILURE ACUTE [None]
